FAERS Safety Report 19830804 (Version 1)
Quarter: 2021Q3

REPORT INFORMATION
  Report Type: Spontaneous
  Country: US (occurrence: US)
  Receive Date: 20210914
  Receipt Date: 20210914
  Transmission Date: 20211014
  Serious: Yes (Death, Hospitalization)
  Sender: FDA-Public Use
  Company Number: None

PATIENT
  Age: 2 Year
  Sex: Female
  Weight: 11.95 kg

DRUGS (6)
  1. DAUNORUBICIN [Suspect]
     Active Substance: DAUNORUBICIN
     Dates: end: 20210611
  2. DEXAMETHASONE. [Suspect]
     Active Substance: DEXAMETHASONE
     Dates: end: 20210618
  3. ONCASPAR [Suspect]
     Active Substance: PEGASPARGASE
     Dates: end: 20210608
  4. VINCRISTINE SULFATE. [Suspect]
     Active Substance: VINCRISTINE SULFATE
     Dates: end: 20210611
  5. CYTARABINE. [Suspect]
     Active Substance: CYTARABINE
     Dates: end: 20210604
  6. METHOTREXATE. [Suspect]
     Active Substance: METHOTREXATE
     Dates: end: 20210611

REACTIONS (7)
  - Pyrexia [None]
  - Irritability [None]
  - Pancreatitis [None]
  - Malaise [None]
  - Cardio-respiratory arrest [None]
  - Cardiac failure [None]
  - Sepsis [None]

NARRATIVE: CASE EVENT DATE: 20210618
